FAERS Safety Report 8618422-1 (Version None)
Quarter: 2012Q3

REPORT INFORMATION
  Report Type: 
  Country: None (occurrence: None)
  Receive Date: 20120824
  Receipt Date: 20120820
  Transmission Date: 20120928
  Serious: No
  Sender: FDA-Public Use
  Company Number: US-BIOGENIDEC-2012BI032625

PATIENT
  Sex: Male

DRUGS (2)
  1. AVONEX [Suspect]
     Indication: MULTIPLE SCLEROSIS
     Route: 030
     Dates: start: 20111101
  2. BACLOFEN [Concomitant]
     Indication: MUSCLE SPASMS

REACTIONS (7)
  - MUSCLE SPASMS [None]
  - PARAESTHESIA [None]
  - VISION BLURRED [None]
  - VITREOUS FLOATERS [None]
  - POLLAKIURIA [None]
  - BREATHING-RELATED SLEEP DISORDER [None]
  - INFLUENZA LIKE ILLNESS [None]
